FAERS Safety Report 6546761-7 (Version None)
Quarter: 2010Q1

REPORT INFORMATION
  Report Type: 
  Country: None (occurrence: None)
  Receive Date: 20100122
  Receipt Date: 20100112
  Transmission Date: 20100710
  Serious: Yes (Life-Threatening, Other)
  Sender: FDA-Public Use
  Company Number: JP-PFIZER INC-2009291142

PATIENT
  Age: 82 Year
  Sex: Male
  Weight: 61.5 kg

DRUGS (15)
  1. SUNITINIB MALATE [Suspect]
     Indication: GASTROINTESTINAL STROMAL TUMOUR
     Dosage: 37.5 MG, DAILY
     Route: 048
     Dates: start: 20091008, end: 20091023
  2. ONON [Concomitant]
     Dosage: UNK
     Route: 048
  3. CRAVIT [Concomitant]
     Dosage: UNK
     Route: 048
  4. SUNRYTHM [Concomitant]
     Dosage: UNK
     Route: 048
  5. WARFARIN [Concomitant]
     Dosage: UNK
     Route: 048
  6. MEPTIN [Concomitant]
     Dosage: UNK
     Route: 055
  7. PYRIDOXAL [Concomitant]
     Dosage: UNK
     Route: 048
     Dates: start: 20091008
  8. PARIET [Concomitant]
     Dosage: UNK
     Route: 048
  9. MAGNESIUM OXIDE [Concomitant]
     Dosage: UNK
     Route: 048
  10. RENIVACE [Concomitant]
     Dosage: UNK
     Route: 048
  11. DIGOXIN [Concomitant]
     Dosage: UNK
     Route: 048
  12. LASIX [Concomitant]
     Dosage: UNK
     Route: 048
  13. ALDACTONE [Concomitant]
     Dosage: UNK
     Route: 048
  14. ISOSORBIDE DINITRATE [Concomitant]
     Dosage: UNK
     Route: 048
  15. THEOPHYLLINE [Concomitant]
     Dosage: UNK
     Route: 048

REACTIONS (2)
  - ELECTROCARDIOGRAM QT PROLONGED [None]
  - HYPERURICAEMIA [None]
